FAERS Safety Report 4499016-9 (Version None)
Quarter: 2004Q4

REPORT INFORMATION
  Report Type: 
  Country: None (occurrence: None)
  Receive Date: 20041108
  Receipt Date: 20041025
  Transmission Date: 20050328
  Serious: Yes (Other)
  Sender: FDA-Public Use
  Company Number: 2004241387GB

PATIENT
  Age: 42 Year
  Sex: Female
  Weight: 90 kg

DRUGS (5)
  1. BEXTRA [Suspect]
     Indication: BACK PAIN
     Dosage: 20 MG, QD, ORAL
     Route: 048
     Dates: start: 20040816, end: 20040908
  2. AMITRIPTYLINE HCL [Concomitant]
  3. GABAPENTIN [Concomitant]
  4. DIAZEPAM [Concomitant]
  5. CO-CODAMOL [Concomitant]

REACTIONS (1)
  - MUSCLE CRAMP [None]
